FAERS Safety Report 8531522-X (Version None)
Quarter: 2012Q3

REPORT INFORMATION
  Report Type: 
  Country: None (occurrence: None)
  Receive Date: 20120710
  Receipt Date: 20120627
  Transmission Date: 20120928
  Serious: Yes (Hospitalization)
  Sender: FDA-Public Use
  Company Number: UTC-020426

PATIENT
  Age: 34 Year
  Sex: Female

DRUGS (4)
  1. REVATIO [Concomitant]
  2. REMODULIN [Suspect]
     Dosage: 119.52 UG/KG (0.083 UG/KG, 1 IN 1 MIN), INTRAVENOUS
     Route: 042
     Dates: start: 20080101
  3. TRACLEER [Concomitant]
  4. COUMADIN [Concomitant]

REACTIONS (1)
  - LUNG DISORDER [None]
